FAERS Safety Report 18324291 (Version 2)
Quarter: 2020Q4

REPORT INFORMATION
  Report Type: Report from Study
  Country: ES (occurrence: ES)
  Receive Date: 20200929
  Receipt Date: 20201001
  Transmission Date: 20210113
  Serious: Yes (Congenital Anomaly, Other)
  Sender: FDA-Public Use
  Company Number: ES-GLAXOSMITHKLINE-ES2020GSK192357

PATIENT

DRUGS (2)
  1. IMMUNOGLOBULIN CYTOMEGALOVIRUS [Suspect]
     Active Substance: HUMAN CYTOMEGALOVIRUS IMMUNE GLOBULIN
     Indication: CONGENITAL CYTOMEGALOVIRUS INFECTION
     Dosage: UNK (200 UI/KG)
     Route: 064
  2. VALACICLOVIR HYDROCHLORIDE [Suspect]
     Active Substance: VALACYCLOVIR HYDROCHLORIDE
     Indication: CONGENITAL CYTOMEGALOVIRUS INFECTION
     Dosage: 2 G, QID
     Route: 064

REACTIONS (10)
  - Neurological examination abnormal [Unknown]
  - Foetal exposure during pregnancy [Unknown]
  - Hypertransaminasaemia [Unknown]
  - Premature baby [Unknown]
  - Hyperbilirubinaemia neonatal [Unknown]
  - Delayed myelination [Unknown]
  - Cerebral atrophy congenital [Unknown]
  - Purpura neonatal [Unknown]
  - Deafness bilateral [Unknown]
  - Thrombocytopenia neonatal [Unknown]
